FAERS Safety Report 25472392 (Version 1)
Quarter: 2025Q2

REPORT INFORMATION
  Report Type: Spontaneous
  Country: GB (occurrence: GB)
  Receive Date: 20250624
  Receipt Date: 20250624
  Transmission Date: 20250716
  Serious: Yes (Death, Hospitalization)
  Sender: SAMSUNG BIOEPIS
  Company Number: GB-SAMSUNG BIOEPIS-SB-2025-21830

PATIENT

DRUGS (1)
  1. INFLIXIMAB [Suspect]
     Active Substance: INFLIXIMAB
     Indication: Cardiac sarcoidosis
     Dosage: WEEK 0, WEEK 2 AND WEEK 6, MAINTENANCE DOSES EVERY 8 WEEKS FOR UP TO TWO YEARS;

REACTIONS (3)
  - Sudden cardiac death [Fatal]
  - Cardiogenic shock [Unknown]
  - Off label use [Unknown]
